FAERS Safety Report 15253485 (Version 1)
Quarter: 2018Q3

REPORT INFORMATION
  Report Type: Spontaneous
  Country: US (occurrence: US)
  Receive Date: 20180808
  Receipt Date: 20180808
  Transmission Date: 20181010
  Serious: No
  Sender: FDA-Public Use
  Company Number: US-UNITED THERAPEUTICS-UNT-2018-004578

PATIENT
  Age: 31 Year
  Sex: Female
  Weight: 62.99 kg

DRUGS (4)
  1. TYVASO [Suspect]
     Active Substance: TREPROSTINIL
     Dosage: UNK
  2. TYVASO [Suspect]
     Active Substance: TREPROSTINIL
     Indication: PULMONARY ARTERIAL HYPERTENSION
     Dosage: 18?54 MICROGRAMS, QID
     Dates: start: 20180322
  3. REVATIO [Concomitant]
     Active Substance: SILDENAFIL CITRATE
     Indication: PRODUCT USED FOR UNKNOWN INDICATION
     Route: 065
  4. TYVASO [Suspect]
     Active Substance: TREPROSTINIL
     Dosage: 18?72 MICROGRAMS, QID

REACTIONS (10)
  - Pain in jaw [Unknown]
  - Arthralgia [Unknown]
  - Fatigue [Unknown]
  - Pregnancy [Unknown]
  - Off label use [Unknown]
  - Heart rate increased [Unknown]
  - Headache [Unknown]
  - Flushing [Unknown]
  - Haemodynamic instability [Unknown]
  - Gingival bleeding [Unknown]

NARRATIVE: CASE EVENT DATE: 201712
